FAERS Safety Report 14163618 (Version 2)
Quarter: 2018Q3

REPORT INFORMATION
  Report Type: Spontaneous
  Country: JP (occurrence: JP)
  Receive Date: 20171106
  Receipt Date: 20180912
  Transmission Date: 20181010
  Serious: Yes (Death, Hospitalization, Other)
  Sender: FDA-Public Use
  Company Number: JP-SA-2017SA213275

PATIENT
  Age: 77 Year
  Sex: Female

DRUGS (22)
  1. ELPLAT [Suspect]
     Active Substance: OXALIPLATIN
     Indication: PANCREATIC CARCINOMA
     Dosage: 50 MG/M2,QCY
     Route: 041
     Dates: start: 20140225, end: 20140225
  2. FLUOROURACIL. [Concomitant]
     Active Substance: FLUOROURACIL
     Indication: PANCREATIC CARCINOMA
     Dosage: UNK UNK,QCY
     Route: 040
     Dates: start: 201402, end: 201402
  3. FLUOROURACIL. [Concomitant]
     Active Substance: FLUOROURACIL
     Dosage: UNK UNK,QCY
     Route: 042
     Dates: start: 201402, end: 201402
  4. GASTER [FAMOTIDINE] [Concomitant]
     Dosage: UNK
     Route: 048
     Dates: start: 20140122, end: 201404
  5. LEVOFOLINATE CALCIUM [Suspect]
     Active Substance: LEVOLEUCOVORIN CALCIUM
     Indication: PANCREATIC CARCINOMA
     Dosage: 125 MG, QD
     Route: 041
  6. OXYCONTIN [Concomitant]
     Active Substance: OXYCODONE HYDROCHLORIDE
     Dosage: UNK
     Dates: start: 20140122
  7. FOSAMAC [Concomitant]
     Active Substance: ALENDRONATE SODIUM
     Dosage: UNK
     Dates: start: 20140122
  8. SELBEX [Concomitant]
     Active Substance: TEPRENONE
     Dosage: UNK
     Route: 048
     Dates: start: 20140122
  9. 5?FLUOROURACIL [FLUOROURACIL] [Suspect]
     Active Substance: FLUOROURACIL
     Dosage: 1500 MG, QID
     Route: 041
     Dates: start: 20140225, end: 20140225
  10. OPALMON [Concomitant]
     Active Substance: LIMAPROST
     Dosage: UNK
     Dates: start: 20140122
  11. EMEND [APREPITANT] [Concomitant]
     Dosage: UNK
     Dates: start: 20140225, end: 20140227
  12. TAKEPRON [Concomitant]
     Active Substance: LANSOPRAZOLE
     Dosage: UNK
     Route: 048
     Dates: start: 20140227, end: 20140308
  13. CALCIUM LEVOFOLINATE [Suspect]
     Active Substance: LEVOLEUCOVORIN CALCIUM
     Indication: PANCREATIC CARCINOMA
     Dosage: UNK UNK,QCY
     Route: 041
     Dates: start: 201402, end: 201402
  14. 5?FLUOROURACIL [FLUOROURACIL] [Suspect]
     Active Substance: FLUOROURACIL
     Indication: PANCREATIC CARCINOMA
     Dosage: 250 MG, QD
     Route: 040
     Dates: start: 20140225, end: 20140225
  15. SOLDEM 3A [Concomitant]
     Active Substance: CARBOHYDRATES\POTASSIUM CHLORIDE\SODIUM CHLORIDE\SODIUM LACTATE
     Dosage: UNK
     Dates: start: 20140224, end: 20140226
  16. VEEN D [Concomitant]
     Active Substance: CALCIUM CHLORIDE\DEXTROSE\POTASSIUM CHLORIDE\SODIUM ACETATE\SODIUM CHLORIDE
     Dosage: UNK
     Dates: start: 20140224, end: 20140226
  17. CAMPTO [Suspect]
     Active Substance: IRINOTECAN
     Indication: PANCREATIC CARCINOMA
     Dosage: 80 MG/M2,QCY
     Route: 041
     Dates: start: 20140225, end: 20140225
  18. ALOXI [Concomitant]
     Active Substance: PALONOSETRON HYDROCHLORIDE
     Dosage: UNK
     Dates: start: 20140225, end: 20140225
  19. DECADRON [DEXAMETHASONE SODIUM PHOSPHATE] [Concomitant]
  20. LOXONIN [Concomitant]
     Active Substance: LOXOPROFEN SODIUM
     Route: 048
  21. MAGLAX [MAGNESIUM OXIDE] [Concomitant]
     Dosage: UNK
     Route: 048
     Dates: start: 20140122
  22. ALDACTONE [Concomitant]
     Active Substance: SPIRONOLACTONE
     Dosage: UNK
     Dates: start: 20140204

REACTIONS (4)
  - Nausea [Recovering/Resolving]
  - Vomiting [Recovering/Resolving]
  - Haemoglobin decreased [Unknown]
  - Disseminated intravascular coagulation [Recovering/Resolving]
